FAERS Safety Report 10441877 (Version 1)
Quarter: 2014Q3

REPORT INFORMATION
  Report Type: Report from Study
  Country: US (occurrence: US)
  Receive Date: 20140909
  Receipt Date: 20140909
  Transmission Date: 20150326
  Serious: Yes (Hospitalization, Other)
  Sender: FDA-Public Use
  Company Number: US-GLAXOSMITHKLINE-A1086030A

PATIENT
  Age: 38 Year
  Sex: Female

DRUGS (2)
  1. RADIATION [Suspect]
     Active Substance: RADIATION THERAPY
     Indication: BREAST CANCER
  2. LAPATINIB [Suspect]
     Active Substance: LAPATINIB
     Indication: BREAST CANCER
     Dosage: 1500MG PER DAY
     Route: 048
     Dates: start: 20140729, end: 20140829

REACTIONS (2)
  - Pyrexia [Recovering/Resolving]
  - Anaemia [Unknown]

NARRATIVE: CASE EVENT DATE: 20140731
